FAERS Safety Report 18568026 (Version 1)
Quarter: 2020Q4

REPORT INFORMATION
  Report Type: Spontaneous
  Country: US (occurrence: US)
  Receive Date: 20201202
  Receipt Date: 20201202
  Transmission Date: 20210114
  Serious: No
  Sender: FDA-Public Use
  Company Number: US-ALLERGAN-2022777US

PATIENT
  Age: 83 Year
  Sex: Male
  Weight: 57.1 kg

DRUGS (23)
  1. COENZYME Q10 [Concomitant]
     Active Substance: DIETARY SUPPLEMENT\UBIDECARENONE
  2. ELIQUIS [Concomitant]
     Active Substance: APIXABAN
  3. DIGOXIN. [Concomitant]
     Active Substance: DIGOXIN
  4. ENTRESTO [Concomitant]
     Active Substance: SACUBITRIL\VALSARTAN
     Dosage: 49-51 MG
  5. MULTIVITAMIN AND MINERAL SUPPLEMENT [Concomitant]
     Active Substance: MINERALS\VITAMINS
  6. MEMANTINE HCL UNK [Suspect]
     Active Substance: MEMANTINE HYDROCHLORIDE
     Dosage: 5 MG, BID
     Dates: start: 20200226, end: 2020
  7. CARBIDOPA/LEVODOPA EXTENDED RELEASE [Concomitant]
  8. CARVEDILOL. [Concomitant]
     Active Substance: CARVEDILOL
  9. FUROSEMIDE. [Concomitant]
     Active Substance: FUROSEMIDE
  10. MYRBETRIQ [Concomitant]
     Active Substance: MIRABEGRON
  11. MEMANTINE HCL UNK [Suspect]
     Active Substance: MEMANTINE HYDROCHLORIDE
     Dosage: 10 MG, QPM
     Dates: start: 202004, end: 202005
  12. GOCOVRI [Suspect]
     Active Substance: AMANTADINE
     Dosage: 68.5 MG, QPM
     Route: 048
  13. GOCOVRI [Suspect]
     Active Substance: AMANTADINE
     Dosage: 137 MG, QPM (2 CAPSULES OF 68.5MG)
     Route: 048
     Dates: start: 202004
  14. GOCOVRI [Suspect]
     Active Substance: AMANTADINE
     Dosage: 68.5 MG, QPM
     Route: 048
     Dates: start: 20200226, end: 202004
  15. GOCOVRI [Suspect]
     Active Substance: AMANTADINE
     Indication: DYSKINESIA
     Dosage: 137 MG EVERY 48 HOURS (ONE CAPSULE 137 MG)
     Route: 048
     Dates: start: 202005
  16. GOCOVRI [Suspect]
     Active Substance: AMANTADINE
     Dosage: 137 MG, QPM (1 CAPSULE OF 137 MG)
     Route: 048
     Dates: start: 202004
  17. GOCOVRI [Suspect]
     Active Substance: AMANTADINE
     Dosage: 274 MG, QPM (2 CAPSULES 137 MG)
     Route: 048
     Dates: start: 202004
  18. MONTELUKAST [Concomitant]
     Active Substance: MONTELUKAST SODIUM
     Dosage: 10 MG
  19. B COMPLEX                          /00212701/ [Concomitant]
     Active Substance: NIACINAMIDE\PYRIDOXINE\RIBOFLAVIN\THIAMINE
  20. MEMANTINE HCL UNK [Suspect]
     Active Substance: MEMANTINE HYDROCHLORIDE
     Indication: LOGORRHOEA
     Dosage: 20 MG, QPM
     Dates: start: 202005
  21. ALDACTONE [Concomitant]
     Active Substance: SPIRONOLACTONE
     Dosage: 12.5 MG
  22. ATORVASTATIN [Concomitant]
     Active Substance: ATORVASTATIN
  23. PROBIOTIC                          /06395501/ [Concomitant]
     Active Substance: BIFIDOBACTERIUM ANIMALIS LACTIS

REACTIONS (11)
  - Insomnia [Recovering/Resolving]
  - Skin abrasion [Unknown]
  - Logorrhoea [Recovering/Resolving]
  - Abnormal behaviour [Recovering/Resolving]
  - Hallucination, visual [Recovering/Resolving]
  - Off label use [Unknown]
  - Restlessness [Recovering/Resolving]
  - Fall [Recovering/Resolving]
  - Cyst [Not Recovered/Not Resolved]
  - Balance disorder [Recovering/Resolving]
  - Paranoia [Recovering/Resolving]

NARRATIVE: CASE EVENT DATE: 20200226
